FAERS Safety Report 16073598 (Version 2)
Quarter: 2019Q3

REPORT INFORMATION
  Report Type: Report from Study
  Country: US (occurrence: US)
  Receive Date: 20190314
  Receipt Date: 20190919
  Transmission Date: 20191004
  Serious: Yes (Hospitalization)
  Sender: FDA-Public Use
  Company Number: PHHY2019US054382

PATIENT
  Age: 29 Year
  Sex: Female
  Weight: 44.5 kg

DRUGS (1)
  1. GILENYA [Suspect]
     Active Substance: FINGOLIMOD HYDROCHLORIDE
     Indication: MULTIPLE SCLEROSIS
     Dosage: 0.5 MG, QD
     Route: 048
     Dates: start: 20170320, end: 20190121

REACTIONS (3)
  - Pneumonitis [Recovering/Resolving]
  - Pleural effusion [Recovering/Resolving]
  - Respiratory distress [Recovered/Resolved]

NARRATIVE: CASE EVENT DATE: 20190121
